FAERS Safety Report 6489750 (Version 4)
Quarter: 2013Q4

REPORT INFORMATION
  Report Type: Spontaneous
  Country: US (occurrence: US)
  Receive Date: 20071210
  Receipt Date: 20131115
  Transmission Date: 20140711
  Serious: Yes (Hospitalization, Other)
  Sender: FDA-Public Use
  Company Number: US-AMGEN-KDL206083

PATIENT
  Age: 49 Year
  Sex: Female

DRUGS (7)
  1. ENBREL [Suspect]
     Indication: RHEUMATOID ARTHRITIS
     Dosage: 50 MG, QWK
     Route: 058
     Dates: start: 20000601, end: 20131101
  2. ENBREL [Suspect]
     Dosage: UNK
     Route: 065
  3. TREXALL [Concomitant]
     Dosage: 3 MG, QWK
     Dates: start: 20110925
  4. FOLIC ACID [Concomitant]
     Dosage: 1 MG, UNK
  5. SYNTHROID [Concomitant]
     Dosage: UNK
  6. ZOLOFT [Concomitant]
     Dosage: UNK
  7. METHOTREXATE [Concomitant]
     Dosage: 3 DF, QWK
     Dates: start: 2010

REACTIONS (24)
  - Papillary thyroid cancer [Recovered/Resolved]
  - Road traffic accident [Recovered/Resolved]
  - Concussion [Recovered/Resolved]
  - Rib fracture [Recovered/Resolved]
  - Loss of consciousness [Recovered/Resolved]
  - Hypoaesthesia [Not Recovered/Not Resolved]
  - Clostridium difficile infection [Recovered/Resolved]
  - Local swelling [Not Recovered/Not Resolved]
  - Inflammation [Not Recovered/Not Resolved]
  - Rheumatoid arthritis [Not Recovered/Not Resolved]
  - Malaise [Not Recovered/Not Resolved]
  - Pain [Not Recovered/Not Resolved]
  - Pyrexia [Not Recovered/Not Resolved]
  - Joint swelling [Not Recovered/Not Resolved]
  - Hypokinesia [Not Recovered/Not Resolved]
  - Headache [Not Recovered/Not Resolved]
  - Skin discolouration [Not Recovered/Not Resolved]
  - Injection site pain [Unknown]
  - Injection site bruising [Not Recovered/Not Resolved]
  - Injection site reaction [Unknown]
  - Injection site haemorrhage [Unknown]
  - Injection site erythema [Unknown]
  - Injection site swelling [Unknown]
  - Injection site discolouration [Not Recovered/Not Resolved]
